FAERS Safety Report 16275199 (Version 1)
Quarter: 2019Q2

REPORT INFORMATION
  Report Type: Spontaneous
  Country: US (occurrence: US)
  Receive Date: 20190503
  Receipt Date: 20190503
  Transmission Date: 20190711
  Serious: Yes (Disabling)
  Sender: FDA-Public Use
  Company Number: None

PATIENT
  Age: 16 Month
  Sex: Female
  Weight: 10.4 kg

DRUGS (1)
  1. UP AND UP POWDERLAX [Suspect]
     Active Substance: POLYETHYLENE GLYCOL 3350
     Indication: CONSTIPATION
     Dosage: ?          QUANTITY:1 17 GRAMS;OTHER FREQUENCY:ONCE IN 2 DAYS;?
     Route: 048
     Dates: start: 20190129, end: 20190417

REACTIONS (4)
  - Product use issue [None]
  - Abnormal behaviour [None]
  - Decreased eye contact [None]
  - Unresponsive to stimuli [None]

NARRATIVE: CASE EVENT DATE: 20190301
